FAERS Safety Report 6411944-3 (Version None)
Quarter: 2009Q4

REPORT INFORMATION
  Report Type: 
  Country: None (occurrence: None)
  Receive Date: 20091023
  Receipt Date: 20091013
  Transmission Date: 20100525
  Serious: No
  Sender: FDA-Public Use
  Company Number: US-JNJFOC-20091004804

PATIENT
  Sex: Male
  Weight: 91.17 kg

DRUGS (4)
  1. FENTANYL TRANSDERMAL SYSTEM [Suspect]
     Indication: BACK PAIN
     Dosage: (NDC# 0781-7111-55)
     Route: 062
     Dates: start: 20081201
  2. COREG [Concomitant]
     Indication: CARDIAC DISORDER
     Route: 048
  3. ZOCOR [Concomitant]
     Indication: BLOOD CHOLESTEROL
     Route: 048
  4. MOTRIN [Concomitant]
     Indication: ARTHRALGIA
     Route: 048

REACTIONS (5)
  - DRUG ADMINISTERED AT INAPPROPRIATE SITE [None]
  - INADEQUATE ANALGESIA [None]
  - PRODUCT ADHESION ISSUE [None]
  - TREATMENT NONCOMPLIANCE [None]
  - WRONG TECHNIQUE IN DRUG USAGE PROCESS [None]
